FAERS Safety Report 8426872-1 (Version None)
Quarter: 2012Q2

REPORT INFORMATION
  Report Type: 
  Country: None (occurrence: None)
  Receive Date: 20120611
  Receipt Date: 20120601
  Transmission Date: 20120825
  Serious: Yes (Hospitalization)
  Sender: FDA-Public Use
  Company Number: US-JNJFOC-20120602829

PATIENT
  Sex: Female
  Weight: 37 kg

DRUGS (4)
  1. REMICADE [Suspect]
     Indication: CROHN'S DISEASE
     Route: 042
     Dates: start: 20090826
  2. PHENAZOPYRIDINE HCL TAB [Concomitant]
  3. PREDNISONE TAB [Concomitant]
  4. NEXIUM [Concomitant]

REACTIONS (1)
  - SMALL INTESTINAL OBSTRUCTION [None]
